FAERS Safety Report 7588788-2 (Version None)
Quarter: 2011Q2

REPORT INFORMATION
  Report Type: 
  Country: None (occurrence: None)
  Receive Date: 20110627
  Receipt Date: 20110620
  Transmission Date: 20111010
  Serious: Yes (Other)
  Sender: FDA-Public Use
  Company Number: 2011SP026087

PATIENT
  Age: 23 Year
  Sex: Female
  Weight: 58 kg

DRUGS (1)
  1. IMPLANON [Suspect]
     Indication: PRODUCT USED FOR UNKNOWN INDICATION
     Dosage: 1 DF;
     Dates: start: 20080809, end: 20110101

REACTIONS (4)
  - PAIN [None]
  - IMPLANT SITE FIBROSIS [None]
  - PARAESTHESIA [None]
  - COMPLICATION OF DEVICE REMOVAL [None]
